FAERS Safety Report 11029593 (Version 1)
Quarter: 2015Q2

REPORT INFORMATION
  Report Type: Spontaneous
  Country: US (occurrence: None)
  Receive Date: 20150413
  Receipt Date: 20150413
  Transmission Date: 20150821
  Serious: No
  Sender: FDA-Public Use
  Company Number: None

PATIENT
  Age: 36 Year
  Sex: Male
  Weight: 65.77 kg

DRUGS (1)
  1. NASACORT [Suspect]
     Active Substance: TRIAMCINOLONE ACETONIDE
     Indication: MULTIPLE ALLERGIES
     Dosage: 1-2 SPRAYS PER NOSTRIL ONCE DAILY INHALATION
     Route: 055
     Dates: start: 20150324, end: 20150410

REACTIONS (6)
  - Anosmia [None]
  - Mood swings [None]
  - Nausea [None]
  - Dyspepsia [None]
  - Ageusia [None]
  - Headache [None]
